FAERS Safety Report 4809021-8 (Version None)
Quarter: 2005Q4

REPORT INFORMATION
  Report Type: 
  Country: None (occurrence: None)
  Receive Date: 20051021
  Receipt Date: 20040819
  Transmission Date: 20060501
  Serious: No
  Sender: FDA-Public Use
  Company Number: EWC040840379

PATIENT
  Age: 37 Year
  Sex: Male

DRUGS (10)
  1. OLANZAPINE [Suspect]
     Indication: ABNORMAL BEHAVIOUR
     Dosage: 20 MG DAY
     Route: 048
     Dates: start: 20040319, end: 20040613
  2. OLANZAPINE [Suspect]
     Indication: AFFECTIVE DISORDER
     Dosage: 20 MG DAY
     Route: 048
     Dates: start: 20040319, end: 20040613
  3. OLANZAPINE [Suspect]
     Indication: ALCOHOLISM
     Dosage: 20 MG DAY
     Route: 048
     Dates: start: 20040319, end: 20040613
  4. OLANZAPINE [Suspect]
     Indication: PERSONALITY DISORDER
     Dosage: 20 MG DAY
     Route: 048
     Dates: start: 20040319, end: 20040613
  5. EFFEXOR [Concomitant]
  6. ANTABUSE [Concomitant]
  7. OXAZEPAM [Concomitant]
  8. CLORAZEPATE DIPOTASSIUM [Concomitant]
  9. OMEPRAZOLE [Concomitant]
  10. MAGNESIOCARD [Concomitant]

REACTIONS (1)
  - CONJUNCTIVAL HAEMORRHAGE [None]
